FAERS Safety Report 6045771-6 (Version None)
Quarter: 2009Q1

REPORT INFORMATION
  Report Type: 
  Country: None (occurrence: None)
  Receive Date: 20090121
  Receipt Date: 20090109
  Transmission Date: 20090719
  Serious: Yes (Other)
  Sender: FDA-Public Use
  Company Number: US-PFIZER INC-2008092746

PATIENT
  Sex: Male
  Weight: 126.98 kg

DRUGS (6)
  1. CAVERJECT [Suspect]
     Indication: DIABETES MELLITUS
     Dosage: 20 UG, UNK
     Dates: start: 20060101
  2. INSULIN [Suspect]
     Indication: DIABETES MELLITUS
     Dosage: UNK
  3. CARDIOVASCULAR SYSTEM DRUGS [Concomitant]
     Indication: CARDIAC DISORDER
  4. DRUG USED IN DIABETES [Concomitant]
     Indication: DIABETES MELLITUS
  5. ALL OTHER THERAPEUTIC PRODUCTS [Concomitant]
     Indication: EYE DISORDER
  6. CHOLESTEROL- AND TRIGLYCERIDE REDUCERS [Concomitant]
     Indication: BLOOD CHOLESTEROL INCREASED

REACTIONS (2)
  - DRUG INEFFECTIVE [None]
  - MYOCARDIAL INFARCTION [None]
